FAERS Safety Report 15430776 (Version 6)
Quarter: 2018Q4

REPORT INFORMATION
  Report Type: Spontaneous
  Country: GB (occurrence: GB)
  Receive Date: 20180926
  Receipt Date: 20181116
  Transmission Date: 20190204
  Serious: Yes (Other)
  Sender: FDA-Public Use
  Company Number: PHHY2018GB105894

PATIENT
  Sex: Female

DRUGS (3)
  1. PANOBINOSTAT [Suspect]
     Active Substance: PANOBINOSTAT
     Indication: PLASMA CELL MYELOMA
     Dosage: UNK ( UNSPECIFIED)
     Route: 065
  2. DEXAMETHASONE. [Suspect]
     Active Substance: DEXAMETHASONE
     Indication: PLASMA CELL MYELOMA
     Dosage: UNK (UNSPECIFIED)
     Route: 065
  3. VELCADE [Suspect]
     Active Substance: BORTEZOMIB
     Indication: PLASMA CELL MYELOMA
     Dosage: UNK (LYOPHILIZED POWDER)
     Route: 065

REACTIONS (7)
  - Cataract [Unknown]
  - Malaise [Unknown]
  - Asthenia [Unknown]
  - Therapeutic product ineffective [Unknown]
  - Neuropathy peripheral [Unknown]
  - Depression [Unknown]
  - Fatigue [Unknown]
